FAERS Safety Report 6609543-3 (Version None)
Quarter: 2010Q1

REPORT INFORMATION
  Report Type: 
  Country: None (occurrence: None)
  Receive Date: 20100302
  Receipt Date: 20100222
  Transmission Date: 20100710
  Serious: Yes (Other)
  Sender: FDA-Public Use
  Company Number: US-JNJFOC-20100210225

PATIENT
  Sex: Female
  Weight: 58.97 kg

DRUGS (4)
  1. FENTANYL-100 [Suspect]
     Indication: HEADACHE
     Route: 062
  2. FENTANYL CITRATE [Suspect]
     Indication: HEADACHE
     Route: 062
  3. LEVOTHYROXINE [Concomitant]
     Indication: THYROID DISORDER
     Route: 048
  4. LASIX [Concomitant]
     Indication: HYPERTENSION
     Route: 048

REACTIONS (3)
  - APPLICATION SITE BLEEDING [None]
  - GASTROENTERITIS VIRAL [None]
  - PRODUCT QUALITY ISSUE [None]
